FAERS Safety Report 18477651 (Version 1)
Quarter: 2020Q4

REPORT INFORMATION
  Report Type: Other
  Country: CA (occurrence: CA)
  Receive Date: 20201107
  Receipt Date: 20201107
  Transmission Date: 20210114
  Serious: Yes (Other)
  Sender: FDA-Public Use
  Company Number: CA-CELLTRION INC.-2020CA030390

PATIENT

DRUGS (13)
  1. RITUXIMAB (UNKNOWN) [Suspect]
     Active Substance: RITUXIMAB
     Indication: RHEUMATOID ARTHRITIS
     Dosage: 1000 MG
     Route: 042
  2. BENADRYL [Concomitant]
     Active Substance: DIPHENHYDRAMINE HYDROCHLORIDE
     Indication: PREMEDICATION
     Dosage: 50 MG
     Route: 048
  3. METHYLPREDNISOLONE SODIUM SUCCINATE. [Concomitant]
     Active Substance: METHYLPREDNISOLONE SODIUM SUCCINATE
     Indication: PREMEDICATION
     Dosage: 100 MG
     Route: 042
  4. SALMETEROL XINAFOATE [Concomitant]
     Active Substance: SALMETEROL XINAFOATE
  5. TYLENOL [Concomitant]
     Active Substance: ACETAMINOPHEN
     Indication: PREMEDICATION
     Dosage: 650 MG
     Route: 048
  6. PROLIA [Concomitant]
     Active Substance: DENOSUMAB
  7. ACETAMINOPHEN;OXYCODONE HYDROCHLORIDE [Concomitant]
     Active Substance: ACETAMINOPHEN\OXYCODONE HYDROCHLORIDE
  8. COLCHICINE. [Concomitant]
     Active Substance: COLCHICINE
  9. DUTASTERIDE. [Concomitant]
     Active Substance: DUTASTERIDE
  10. RAPAFLO [Concomitant]
     Active Substance: SILODOSIN
  11. IRBESARTAN. [Concomitant]
     Active Substance: IRBESARTAN
  12. LACTULOSE. [Concomitant]
     Active Substance: LACTULOSE
  13. PREDNISONE. [Concomitant]
     Active Substance: PREDNISONE

REACTIONS (8)
  - Blood pressure systolic abnormal [Unknown]
  - Off label use [Unknown]
  - Subdural haematoma [Unknown]
  - Blood pressure diastolic abnormal [Unknown]
  - Oxygen saturation decreased [Unknown]
  - Blood pressure systolic increased [Unknown]
  - Blood pressure diastolic decreased [Unknown]
  - Intentional product use issue [Unknown]
